FAERS Safety Report 7321626-1 (Version None)
Quarter: 2011Q1

REPORT INFORMATION
  Report Type: 
  Country: None (occurrence: None)
  Receive Date: 20110228
  Receipt Date: 20100916
  Transmission Date: 20110831
  Serious: No
  Sender: FDA-Public Use
  Company Number: A0881490A

PATIENT
  Sex: Female

DRUGS (1)
  1. VALTREX [Suspect]
     Dosage: 500MG PER DAY
     Route: 048

REACTIONS (2)
  - SWELLING FACE [None]
  - RASH [None]
